FAERS Safety Report 19196782 (Version 1)
Quarter: 2021Q2

REPORT INFORMATION
  Report Type: Spontaneous
  Country: FR (occurrence: FR)
  Receive Date: 20210430
  Receipt Date: 20210430
  Transmission Date: 20210717
  Serious: Yes (Life-Threatening, Hospitalization)
  Sender: FDA-Public Use
  Company Number: FR-ETHYPHARM-2021000577

PATIENT
  Age: 45 Year
  Sex: Male

DRUGS (3)
  1. BENZODIAZ?PINE [Suspect]
     Active Substance: BENZODIAZEPINE
     Route: 065
     Dates: start: 202007
  2. BUPRENORPHINE. [Suspect]
     Active Substance: BUPRENORPHINE
     Route: 065
     Dates: start: 202007
  3. COCA?NE [Suspect]
     Active Substance: COCAINE
     Route: 065
     Dates: start: 202007

REACTIONS (2)
  - Coma [Recovered/Resolved]
  - Drug abuse [Not Recovered/Not Resolved]

NARRATIVE: CASE EVENT DATE: 202007
